FAERS Safety Report 8307380-5 (Version None)
Quarter: 2012Q2

REPORT INFORMATION
  Report Type: 
  Country: None (occurrence: None)
  Receive Date: 20120424
  Receipt Date: 20120412
  Transmission Date: 20120825
  Serious: Yes (Death)
  Sender: FDA-Public Use
  Company Number: US-SANOFI-AVENTIS-2012SA014000

PATIENT
  Age: 56 Year
  Sex: Male

DRUGS (1)
  1. AMBIEN [Suspect]

REACTIONS (6)
  - AGITATION [None]
  - COMPLETED SUICIDE [None]
  - STRESS [None]
  - VERBAL ABUSE [None]
  - ANXIETY [None]
  - INSOMNIA [None]
